FAERS Safety Report 14426205 (Version 3)
Quarter: 2019Q2

REPORT INFORMATION
  Report Type: Report from Study
  Country: US (occurrence: US)
  Receive Date: 20180123
  Receipt Date: 20190402
  Transmission Date: 20190711
  Serious: Yes (Death, Hospitalization, Disabling)
  Sender: FDA-Public Use
  Company Number: US-ACTELION-A-US2016-137292

PATIENT
  Sex: Female

DRUGS (6)
  1. BUMEX [Concomitant]
     Active Substance: BUMETANIDE
  2. CARDIZEM [Concomitant]
     Active Substance: DILTIAZEM HYDROCHLORIDE
  3. LOPRESSOR [Concomitant]
     Active Substance: METOPROLOL TARTRATE
  4. OPSUMIT [Suspect]
     Active Substance: MACITENTAN
     Indication: PULMONARY ARTERIAL HYPERTENSION
     Dosage: 10 MG, QD
     Route: 048
     Dates: start: 20150318
  5. SYMBICORT [Concomitant]
     Active Substance: BUDESONIDE\FORMOTEROL FUMARATE DIHYDRATE
  6. ALDACTONE [Concomitant]
     Active Substance: SPIRONOLACTONE

REACTIONS (13)
  - Dyspnoea [Unknown]
  - Bronchitis [Recovering/Resolving]
  - Acute kidney injury [Recovering/Resolving]
  - Blood count abnormal [Unknown]
  - Pneumonia [Not Recovered/Not Resolved]
  - Transfusion [Unknown]
  - Death [Fatal]
  - Supraventricular tachycardia [Not Recovered/Not Resolved]
  - Hypercapnia [Recovered/Resolved]
  - Gastrointestinal haemorrhage [Recovered/Resolved]
  - Respiratory failure [Not Recovered/Not Resolved]
  - Diverticulitis [Recovering/Resolving]
  - Atrial fibrillation [Recovered/Resolved]
